FAERS Safety Report 7359747-X (Version None)
Quarter: 2011Q1

REPORT INFORMATION
  Report Type: 
  Country: None (occurrence: None)
  Receive Date: 20110307
  Receipt Date: 20110218
  Transmission Date: 20110831
  Serious: Yes (Hospitalization)
  Sender: FDA-Public Use
  Company Number: AUR-APL-2011-00622

PATIENT
  Age: 7 Year
  Sex: Male

DRUGS (4)
  1. ADIZEM-SR [Concomitant]
  2. CITALOPRAM HYDROBROMIDE [Concomitant]
  3. SIMVASTATIN [Suspect]
     Indication: HYPERCHOLESTEROLAEMIA
     Dosage: 40MG-DAILY-ORAL
     Route: 048
     Dates: start: 20090401, end: 20110126
  4. LISINOPRIL [Concomitant]

REACTIONS (3)
  - CHEST PAIN [None]
  - RHABDOMYOLYSIS [None]
  - SINUS ARRHYTHMIA [None]
